FAERS Safety Report 4364986-6 (Version None)
Quarter: 2004Q2

REPORT INFORMATION
  Report Type: 
  Country: None (occurrence: None)
  Receive Date: 20040521
  Receipt Date: 20040429
  Transmission Date: 20050107
  Serious: Yes (Death, Hospitalization)
  Sender: FDA-Public Use
  Company Number: EWC040539090

PATIENT
  Age: 40 Year
  Sex: Male

DRUGS (2)
  1. GEMZAR [Suspect]
     Indication: GLIOBLASTOMA
     Dates: start: 20040130, end: 20040312
  2. RADIOTHERAPY [Concomitant]

REACTIONS (4)
  - DYSPHAGIA [None]
  - NERVOUS SYSTEM DISORDER [None]
  - PNEUMONIA [None]
  - SOPOR [None]
